FAERS Safety Report 4365076-9 (Version None)
Quarter: 2004Q2

REPORT INFORMATION
  Report Type: 
  Country: None (occurrence: None)
  Receive Date: 20040521
  Receipt Date: 20040511
  Transmission Date: 20050107
  Serious: Yes (Hospitalization)
  Sender: FDA-Public Use
  Company Number: VE-JNJFOC-20040202951

PATIENT
  Age: 37 Year
  Sex: Female
  Weight: 61 kg

DRUGS (14)
  1. REMICADE [Suspect]
     Dosage: SEE IMAGE
     Route: 042
     Dates: start: 20010402
  2. REMICADE [Suspect]
     Dosage: SEE IMAGE
     Route: 042
     Dates: start: 20010416
  3. REMICADE [Suspect]
     Dosage: SEE IMAGE
     Route: 042
     Dates: start: 20010521
  4. REMICADE [Suspect]
     Dosage: SEE IMAGE
     Route: 042
     Dates: start: 20010718
  5. REMICADE [Suspect]
     Dosage: SEE IMAGE
     Route: 042
     Dates: start: 20010912
  6. REMICADE [Suspect]
     Dosage: SEE IMAGE
     Route: 042
     Dates: start: 20020729
  7. REMICADE [Suspect]
     Dosage: SEE IMAGE
     Route: 042
     Dates: start: 20021021
  8. REMICADE [Suspect]
     Dosage: SEE IMAGE
     Route: 042
     Dates: start: 20021125
  9. REMICADE [Suspect]
     Dosage: SEE IMAGE
     Route: 042
     Dates: start: 20030120
  10. REMICADE [Suspect]
     Dosage: SEE IMAGE
     Route: 042
     Dates: start: 20030407
  11. REMICADE [Suspect]
     Dosage: SEE IMAGE
     Route: 042
     Dates: start: 20030801
  12. REMICADE [Suspect]
     Dosage: SEE IMAGE
     Route: 042
     Dates: start: 20031022
  13. CHLOROQUINE (CHLOROQUINE) [Concomitant]
  14. ACETAMINOPHEN [Concomitant]

REACTIONS (3)
  - DRUG EXPOSURE DURING PREGNANCY [None]
  - FOETAL HEART RATE ABNORMAL [None]
  - PREGNANCY [None]
